FAERS Safety Report 7347225-3 (Version None)
Quarter: 2011Q1

REPORT INFORMATION
  Report Type: 
  Country: None (occurrence: None)
  Receive Date: 20110311
  Receipt Date: 20110301
  Transmission Date: 20110831
  Serious: Yes (Hospitalization)
  Sender: FDA-Public Use
  Company Number: IT-CELGENEUS-083-21880-10121963

PATIENT
  Sex: Male
  Weight: 88 kg

DRUGS (9)
  1. REVLIMID [Suspect]
     Indication: MULTIPLE MYELOMA
     Dosage: 25 MILLIGRAM
     Route: 048
     Dates: start: 20101019, end: 20101103
  2. SOLDESAM [Suspect]
     Indication: MULTIPLE MYELOMA
     Dosage: 10 MILLIGRAM
     Route: 048
     Dates: start: 20101019, end: 20101103
  3. CLODRONIC ACID [Concomitant]
     Dosage: 100 MILLIGRAM
     Route: 048
     Dates: start: 20101106, end: 20101121
  4. FORMOTEROL W/BUDESONIDE [Concomitant]
     Indication: ASTHMA
     Dosage: 160+4.5
     Route: 048
     Dates: start: 20101106, end: 20101121
  5. REVLIMID [Suspect]
     Dosage: 25 MILLIGRAM
     Route: 048
     Dates: start: 20101213
  6. ASPIRIN [Concomitant]
     Indication: PROPHYLAXIS
     Dosage: 100 MILLIGRAM
     Route: 048
     Dates: start: 20101019, end: 20101103
  7. ASPIRIN [Concomitant]
     Dosage: 100 MILLIGRAM
     Route: 048
     Dates: start: 20101105
  8. LIMPIDEX [Concomitant]
     Indication: GASTROINTESTINAL DISORDER
     Dosage: 30 MILLIGRAM
     Route: 048
     Dates: start: 20101019
  9. SOLDESAM [Suspect]
     Indication: HYPERCALCAEMIA
     Route: 048
     Dates: start: 20101106, end: 20101121

REACTIONS (1)
  - RENAL INJURY [None]
